FAERS Safety Report 17398291 (Version 3)
Quarter: 2020Q1

REPORT INFORMATION
  Report Type: Report from Study
  Country: US (occurrence: US)
  Receive Date: 20200210
  Receipt Date: 20200319
  Transmission Date: 20200409
  Serious: Yes (Hospitalization)
  Sender: FDA-Public Use
  Company Number: US-NOVOPROD-707496

PATIENT
  Age: 62 Year
  Sex: Male
  Weight: 139 kg

DRUGS (1)
  1. SEMAGLUTIDE B 3.0 MG/ML PDS290 [Suspect]
     Active Substance: SEMAGLUTIDE
     Indication: OBESITY
     Dosage: 2.4 MG, QW
     Route: 058
     Dates: start: 20190226

REACTIONS (1)
  - Bile duct stone [Not Recovered/Not Resolved]

NARRATIVE: CASE EVENT DATE: 20200112
